FAERS Safety Report 8294427-8 (Version None)
Quarter: 2012Q2

REPORT INFORMATION
  Report Type: 
  Country: None (occurrence: None)
  Receive Date: 20120418
  Receipt Date: 20120410
  Transmission Date: 20120825
  Serious: Yes (Other)
  Sender: FDA-Public Use
  Company Number: PHHY2012BR031313

PATIENT
  Age: 69 Year
  Sex: Female

DRUGS (5)
  1. BROMAZEPAM [Concomitant]
     Indication: SLEEP DISORDER
     Dosage: HALF TABLET BEFORE SLEEP
     Route: 048
  2. ONBREZ [Suspect]
     Indication: EMPHYSEMA
  3. ALENIA [Suspect]
  4. HYGROTON [Concomitant]
     Indication: HYPERTENSION
     Dosage: 50 MG, QD
     Route: 048
  5. RANITIDINE [Concomitant]
     Indication: ABDOMINAL PAIN UPPER
     Dosage: 1 DF, QD
     Route: 048

REACTIONS (8)
  - DIZZINESS [None]
  - EPISTAXIS [None]
  - HEAD INJURY [None]
  - HEADACHE [None]
  - ABDOMINAL PAIN UPPER [None]
  - FALL [None]
  - CARDIAC DISORDER [None]
  - DYSPNOEA [None]
